FAERS Safety Report 18280070 (Version 2)
Quarter: 2020Q3

REPORT INFORMATION
  Report Type: Spontaneous
  Country: US (occurrence: US)
  Receive Date: 20200918
  Receipt Date: 20200922
  Transmission Date: 20201103
  Serious: Yes (Other)
  Sender: FDA-Public Use
  Company Number: US-ROCHE-2679857

PATIENT
  Sex: Male

DRUGS (1)
  1. ESBRIET [Suspect]
     Active Substance: PIRFENIDONE
     Indication: PULMONARY HYPERTENSION
     Dosage: TAKE 1 TAB BY MOUTH 3 TIME A DAY
     Route: 048

REACTIONS (3)
  - Off label use [Unknown]
  - Epistaxis [Unknown]
  - Intentional product use issue [Unknown]
